FAERS Safety Report 24626024 (Version 1)
Quarter: 2024Q4

REPORT INFORMATION
  Report Type: Spontaneous
  Country: US (occurrence: US)
  Receive Date: 20241115
  Receipt Date: 20241115
  Transmission Date: 20250114
  Serious: No
  Sender: GE HEALTHCARE
  Company Number: US-GE HEALTHCARE-2024CSU009664

PATIENT
  Sex: Female

DRUGS (1)
  1. OPTISON [Suspect]
     Active Substance: HUMAN ALBUMIN MICROSPHERES\PERFLUTREN
     Indication: Echocardiogram
     Dosage: 3 ML, TOTAL
     Route: 065
     Dates: start: 20240821, end: 20240821

REACTIONS (1)
  - Aura [Recovered/Resolved]

NARRATIVE: CASE EVENT DATE: 20240821
